FAERS Safety Report 7586976-2 (Version None)
Quarter: 2011Q3

REPORT INFORMATION
  Report Type: 
  Country: None (occurrence: None)
  Receive Date: 20110701
  Receipt Date: 20110618
  Transmission Date: 20111222
  Serious: Yes (Hospitalization)
  Sender: FDA-Public Use
  Company Number: PHHY2011FR54538

PATIENT
  Age: 40 Year
  Sex: Male

DRUGS (3)
  1. RASILEZ [Suspect]
     Indication: HYPERTENSION
     Dosage: 300 MG DAILY
  2. RASILEZ HCT [Suspect]
     Indication: HYPERTENSION
     Dosage: 12.5 MG, DAILY
  3. LEVOTHYROXINE SODIUM [Concomitant]

REACTIONS (1)
  - NEPHROLITHIASIS [None]
